FAERS Safety Report 9177015 (Version 1)
Quarter: 2013Q1

REPORT INFORMATION
  Report Type: Spontaneous
  Country: US (occurrence: US)
  Receive Date: 20130321
  Receipt Date: 20130321
  Transmission Date: 20140127
  Serious: Yes (Other)
  Sender: FDA-Public Use
  Company Number: US-JNJFOC-2005057665

PATIENT
  Sex: Male
  Weight: 77.1 kg

DRUGS (6)
  1. MOTRIN [Suspect]
     Indication: OSTEOARTHRITIS
     Route: 048
  2. FELDENE [Suspect]
     Indication: OSTEOARTHRITIS
     Dates: start: 2005, end: 2005
  3. ROFECOXIB [Suspect]
     Indication: ILL-DEFINED DISORDER
     Dosage: FREQUENCY TEXT: UNKNOWN DAILY DOSE TEXT: UNKNOWN
     Route: 065
  4. OXYCODONE [Concomitant]
     Route: 048
  5. VERAPAMIL HYDROCHLORIDE [Concomitant]
     Route: 048
  6. VERAPAMIL [Concomitant]
     Route: 048

REACTIONS (7)
  - Colon cancer [Recovered/Resolved]
  - Thrombosis [Recovered/Resolved]
  - Haematochezia [Recovered/Resolved]
  - Haematemesis [Recovered/Resolved]
  - Gastric haemorrhage [Recovered/Resolved]
  - Diverticulum [Not Recovered/Not Resolved]
  - Body height decreased [Unknown]
